FAERS Safety Report 23047627 (Version 4)
Quarter: 2023Q4

REPORT INFORMATION
  Report Type: Spontaneous
  Country: TW (occurrence: TW)
  Receive Date: 20231010
  Receipt Date: 20231102
  Transmission Date: 20240109
  Serious: Yes (Other)
  Sender: FDA-Public Use
  Company Number: TW-BoehringerIngelheim-2023-BI-265772

PATIENT
  Age: 75 Year
  Sex: Male
  Weight: 83 kg

DRUGS (1)
  1. OFEV [Suspect]
     Active Substance: NINTEDANIB
     Indication: Idiopathic pulmonary fibrosis
     Route: 048
     Dates: start: 20230811

REACTIONS (1)
  - Aortic dissection [Recovering/Resolving]

NARRATIVE: CASE EVENT DATE: 20230911
